FAERS Safety Report 5763081-9 (Version None)
Quarter: 2008Q2

REPORT INFORMATION
  Report Type: 
  Country: None (occurrence: None)
  Receive Date: 20080609
  Receipt Date: 20080528
  Transmission Date: 20081010
  Serious: Yes (Hospitalization, Other)
  Sender: FDA-Public Use
  Company Number: US-ELI_LILLY_AND_COMPANY-US200805005913

PATIENT
  Sex: Female

DRUGS (6)
  1. FORTEO [Suspect]
     Indication: OSTEOPOROSIS
     Dates: start: 20071130
  2. BETOPTIC S [Concomitant]
  3. LIPITOR [Concomitant]
  4. CALCIUM [Concomitant]
     Indication: SUPPLEMENTATION THERAPY
  5. MULTI-VITAMIN [Concomitant]
  6. ASPIRIN [Concomitant]

REACTIONS (6)
  - EPISTAXIS [None]
  - FACE INJURY [None]
  - FALL [None]
  - FEELING HOT [None]
  - LOSS OF CONSCIOUSNESS [None]
  - PERIORBITAL HAEMATOMA [None]
